FAERS Safety Report 20034073 (Version 1)
Quarter: 2021Q4

REPORT INFORMATION
  Report Type: Spontaneous
  Country: US (occurrence: US)
  Receive Date: 20211104
  Receipt Date: 20211104
  Transmission Date: 20220304
  Serious: No
  Sender: FDA-Public Use
  Company Number: US-PERRIGO-21US003039

PATIENT

DRUGS (1)
  1. DOXYLAMINE SUCCINATE [Suspect]
     Active Substance: DOXYLAMINE SUCCINATE
     Indication: Insomnia
     Dosage: UNKNOWN, SINGLE
     Route: 048
     Dates: start: 202102, end: 202102

REACTIONS (5)
  - Fatigue [Unknown]
  - Irritability [Unknown]
  - Headache [Unknown]
  - Asthenia [Unknown]
  - Hangover [Unknown]

NARRATIVE: CASE EVENT DATE: 20210201
